FAERS Safety Report 14033414 (Version 1)
Quarter: 2017Q4

REPORT INFORMATION
  Report Type: Spontaneous
  Country: US (occurrence: US)
  Receive Date: 20171002
  Receipt Date: 20171002
  Transmission Date: 20180321
  Serious: No
  Sender: FDA-Public Use
  Company Number: US-JAZZ-2017-US-010451

PATIENT
  Age: 47 Year
  Sex: Female

DRUGS (35)
  1. NAPROXEN. [Concomitant]
     Active Substance: NAPROXEN
  2. SYSTANE BALANCE [Concomitant]
     Active Substance: PROPYLENE GLYCOL
  3. VYVANSE [Concomitant]
     Active Substance: LISDEXAMFETAMINE DIMESYLATE
  4. PREDNISONE. [Concomitant]
     Active Substance: PREDNISONE
  5. PRAZOSIN. [Concomitant]
     Active Substance: PRAZOSIN
  6. BENTYL [Concomitant]
     Active Substance: DICYCLOMINE HYDROCHLORIDE
  7. PRILOSEC [Concomitant]
     Active Substance: OMEPRAZOLE MAGNESIUM
  8. TRAMADOL HCL [Concomitant]
     Active Substance: TRAMADOL HYDROCHLORIDE
  9. STRATTERA [Concomitant]
     Active Substance: ATOMOXETINE HYDROCHLORIDE
  10. METOCLOPRAMIDE. [Concomitant]
     Active Substance: METOCLOPRAMIDE
  11. NEXIUM [Concomitant]
     Active Substance: ESOMEPRAZOLE MAGNESIUM
  12. PROMETHAZINE [Concomitant]
     Active Substance: PROMETHAZINE\PROMETHAZINE HYDROCHLORIDE
  13. SERTRALINE HCL [Concomitant]
     Active Substance: SERTRALINE HYDROCHLORIDE
  14. METHYLPHENIDATE. [Concomitant]
     Active Substance: METHYLPHENIDATE
  15. XYREM [Suspect]
     Active Substance: SODIUM OXYBATE
     Indication: NARCOLEPSY
     Dosage: 2.25G, BID
     Route: 048
     Dates: start: 201407, end: 201407
  16. NUVIGIL [Concomitant]
     Active Substance: ARMODAFINIL
  17. PROAIR HFA [Concomitant]
     Active Substance: ALBUTEROL SULFATE
  18. XYREM [Suspect]
     Active Substance: SODIUM OXYBATE
     Dosage: 4.5G, BID
     Route: 048
     Dates: start: 201606
  19. AZATHIOPRINE. [Concomitant]
     Active Substance: AZATHIOPRINE
  20. CLONAZEPAM. [Concomitant]
     Active Substance: CLONAZEPAM
  21. VOLTAREN [Concomitant]
     Active Substance: DICLOFENAC SODIUM
  22. SILDENAFIL. [Concomitant]
     Active Substance: SILDENAFIL
  23. ADDERALL [Concomitant]
     Active Substance: AMPHETAMINE ASPARTATE\AMPHETAMINE SULFATE\DEXTROAMPHETAMINE SACCHARATE\DEXTROAMPHETAMINE SULFATE
  24. LYRICA [Concomitant]
     Active Substance: PREGABALIN
  25. EPIPEN [Concomitant]
     Active Substance: EPINEPHRINE
  26. GABAPENTIN. [Concomitant]
     Active Substance: GABAPENTIN
  27. VITAMIN D3 [Concomitant]
     Active Substance: CHOLECALCIFEROL
  28. MYCOPHENOLATE [Concomitant]
     Active Substance: MYCOPHENOLIC ACID
  29. PROCARDIA [Concomitant]
     Active Substance: NIFEDIPINE
  30. AMLODIPINE BESYLATE. [Concomitant]
     Active Substance: AMLODIPINE BESYLATE
  31. XYREM [Suspect]
     Active Substance: SODIUM OXYBATE
     Indication: CATAPLEXY
     Dosage: DOSE ADJUSTMENT
     Route: 048
     Dates: start: 201407, end: 201606
  32. VOLTAREN [Concomitant]
     Active Substance: DICLOFENAC SODIUM
  33. LATISSE [Concomitant]
     Active Substance: BIMATOPROST
  34. LISINOPRIL. [Concomitant]
     Active Substance: LISINOPRIL
  35. PREDNISONE                         /00044702/ [Concomitant]
     Active Substance: PREDNISONE

REACTIONS (2)
  - Malaise [Unknown]
  - Sinus disorder [Not Recovered/Not Resolved]

NARRATIVE: CASE EVENT DATE: 201708
